FAERS Safety Report 11677252 (Version 1)
Quarter: 2015Q4

REPORT INFORMATION
  Report Type: Spontaneous
  Country: US (occurrence: US)
  Receive Date: 20151027
  Receipt Date: 20151027
  Transmission Date: 20160304
  Serious: No
  Sender: FDA-Public Use
  Company Number: US-ELI_LILLY_AND_COMPANY-US201006004373

PATIENT
  Age: 84 Year
  Sex: Female

DRUGS (2)
  1. FORTEO [Suspect]
     Active Substance: TERIPARATIDE
     Dosage: 20 UG, DAILY (1/D)
     Route: 058
     Dates: start: 200007
  2. FORTEO [Suspect]
     Active Substance: TERIPARATIDE
     Indication: OSTEOPOROSIS
     Dosage: 20 UG, DAILY (1/D)
     Route: 058
     Dates: start: 20100611

REACTIONS (12)
  - Rash pruritic [Unknown]
  - Sluggishness [Unknown]
  - Insomnia [Unknown]
  - Discomfort [Unknown]
  - Arthralgia [Unknown]
  - Headache [Unknown]
  - Somnolence [Unknown]
  - Nausea [Recovered/Resolved]
  - Rash erythematous [Unknown]
  - Peripheral swelling [Unknown]
  - Fear [Unknown]
  - Burning sensation [Unknown]

NARRATIVE: CASE EVENT DATE: 20100614
